FAERS Safety Report 13760423 (Version 3)
Quarter: 2017Q4

REPORT INFORMATION
  Report Type: Spontaneous
  Country: AU (occurrence: AU)
  Receive Date: 20170717
  Receipt Date: 20171011
  Transmission Date: 20180320
  Serious: Yes (Life-Threatening, Other)
  Sender: FDA-Public Use
  Company Number: AU-JNJFOC-20170709941

PATIENT
  Age: 44 Year
  Sex: Male
  Weight: 84 kg

DRUGS (2)
  1. ASPIRIN. [Concomitant]
     Active Substance: ASPIRIN
     Route: 065
     Dates: end: 20160714
  2. REMICADE [Suspect]
     Active Substance: INFLIXIMAB
     Indication: COLITIS ULCERATIVE
     Dosage: 420 MG
     Route: 042
     Dates: start: 20150501

REACTIONS (1)
  - Non-Hodgkin^s lymphoma stage IV [Unknown]

NARRATIVE: CASE EVENT DATE: 201707
